FAERS Safety Report 4492372-7 (Version None)
Quarter: 2004Q3

REPORT INFORMATION
  Report Type: 
  Country: None (occurrence: None)
  Receive Date: 20040921
  Receipt Date: 20030819
  Transmission Date: 20050211
  Serious: Yes (Death, Hospitalization)
  Sender: FDA-Public Use
  Company Number: 163-20785-03080609

PATIENT
  Age: 77 Year
  Sex: Female

DRUGS (8)
  1. THALOMID [Suspect]
     Indication: OVARIAN CANCER
     Dosage: 200 MG, DAILY, ORAL
     Route: 048
     Dates: start: 20030729, end: 20030729
  2. TOPOTECAN         (TOPOTECAN) [Suspect]
     Dates: end: 20030814
  3. MORPHINE SULFATE [Concomitant]
  4. ZANTAC [Concomitant]
  5. PROTONIX [Concomitant]
  6. ZOFRAN [Concomitant]
  7. ROBINUL (GLYCOPYRRONIUM BROMIDE) [Concomitant]
  8. ATIVAN [Concomitant]

REACTIONS (26)
  - ASPARTATE AMINOTRANSFERASE INCREASED [None]
  - BLOOD ALBUMIN DECREASED [None]
  - BLOOD ALKALINE PHOSPHATASE INCREASED [None]
  - BLOOD AMYLASE INCREASED [None]
  - BLOOD CHLORIDE INCREASED [None]
  - BLOOD CREATININE INCREASED [None]
  - BLOOD GLUCOSE INCREASED [None]
  - BLOOD LACTATE DEHYDROGENASE INCREASED [None]
  - BLOOD MAGNESIUM DECREASED [None]
  - BLOOD POTASSIUM INCREASED [None]
  - BLOOD UREA INCREASED [None]
  - BLOOD URIC ACID INCREASED [None]
  - CONFUSIONAL STATE [None]
  - DEATH [None]
  - DISEASE PROGRESSION [None]
  - HAEMATOCRIT DECREASED [None]
  - HAEMOGLOBIN DECREASED [None]
  - LABORATORY TEST ABNORMAL [None]
  - LETHARGY [None]
  - MENTAL STATUS CHANGES [None]
  - PAIN IN EXTREMITY [None]
  - PCO2 DECREASED [None]
  - PLATELET COUNT DECREASED [None]
  - PROTHROMBIN TIME PROLONGED [None]
  - RED BLOOD CELL COUNT DECREASED [None]
  - SINUS TACHYCARDIA [None]
